FAERS Safety Report 13710067 (Version 1)
Quarter: 2017Q3

REPORT INFORMATION
  Report Type: Spontaneous
  Country: US (occurrence: US)
  Receive Date: 20170703
  Receipt Date: 20170703
  Transmission Date: 20171127
  Serious: No
  Sender: FDA-Public Use
  Company Number: US-TEVA-697170USA

PATIENT
  Sex: Female
  Weight: 40.86 kg

DRUGS (1)
  1. LIDOCAINE. [Suspect]
     Active Substance: LIDOCAINE
     Indication: SCIATICA
     Route: 061
     Dates: start: 2016

REACTIONS (2)
  - Product physical issue [Unknown]
  - Drug ineffective [Unknown]
